FAERS Safety Report 7388762-5 (Version None)
Quarter: 2011Q2

REPORT INFORMATION
  Report Type: 
  Country: None (occurrence: None)
  Receive Date: 20110401
  Receipt Date: 20110329
  Transmission Date: 20111010
  Serious: Yes (Hospitalization)
  Sender: FDA-Public Use
  Company Number: JP-ABBOTT-11P-087-0715093-00

PATIENT
  Sex: Male

DRUGS (1)
  1. KLACID FOR ORAL SUSPENSION [Suspect]
     Indication: PNEUMONIA
     Route: 048
     Dates: start: 20110121, end: 20110201

REACTIONS (3)
  - PYLORIC STENOSIS [None]
  - WEIGHT GAIN POOR [None]
  - VOMITING [None]
